FAERS Safety Report 11795685 (Version 1)
Quarter: 2015Q4

REPORT INFORMATION
  Report Type: Spontaneous
  Country: US (occurrence: US)
  Receive Date: 20151202
  Receipt Date: 20151202
  Transmission Date: 20160305
  Serious: No
  Sender: FDA-Public Use
  Company Number: ALCN2015US003307

PATIENT
  Age: 77 Year
  Sex: Male

DRUGS (1)
  1. DORZOLAMIDE,TIMOLOL [Suspect]
     Active Substance: DORZOLAMIDE\TIMOLOL
     Indication: GLAUCOMA
     Route: 047

REACTIONS (4)
  - Medication residue present [Recovered/Resolved]
  - Dry eye [Not Recovered/Not Resolved]
  - Corneal abrasion [Recovered/Resolved]
  - Foreign body sensation in eyes [Recovered/Resolved]
